FAERS Safety Report 12147162 (Version 2)
Quarter: 2016Q1

REPORT INFORMATION
  Report Type: Spontaneous
  Country: JP (occurrence: JP)
  Receive Date: 20160304
  Receipt Date: 20160311
  Transmission Date: 20160526
  Serious: Yes (Other)
  Sender: FDA-Public Use
  Company Number: JP-ABBVIE-16P-087-1574704-00

PATIENT
  Age: 6 Year
  Sex: Male

DRUGS (4)
  1. BAKUMONDOTO [Concomitant]
     Active Substance: HERBALS
     Indication: BRONCHITIS
     Route: 048
     Dates: start: 20160220, end: 20160224
  2. CLARITHROMYCIN. [Suspect]
     Active Substance: CLARITHROMYCIN
     Indication: BRONCHITIS
     Route: 048
     Dates: start: 20160220, end: 20160224
  3. CLARITHROMYCIN. [Suspect]
     Active Substance: CLARITHROMYCIN
     Indication: COUGH
  4. INAVIR [Suspect]
     Active Substance: LANINAMIVIR
     Indication: INFLUENZA
     Route: 065

REACTIONS (2)
  - Regressive behaviour [Unknown]
  - Posterior reversible encephalopathy syndrome [Unknown]

NARRATIVE: CASE EVENT DATE: 20160222
